FAERS Safety Report 7165892-4 (Version None)
Quarter: 2010Q4

REPORT INFORMATION
  Report Type: 
  Country: None (occurrence: None)
  Receive Date: 20101216
  Receipt Date: 20101213
  Transmission Date: 20110411
  Serious: Yes (Hospitalization, Other)
  Sender: FDA-Public Use
  Company Number: US-BIOGENIDEC-2010BI028389

PATIENT
  Age: 60 Year
  Sex: Female
  Weight: 56 kg

DRUGS (19)
  1. TYSABRI [Suspect]
     Indication: MULTIPLE SCLEROSIS
     Route: 042
     Dates: start: 20070920, end: 20100806
  2. AVONEX [Concomitant]
     Indication: MULTIPLE SCLEROSIS
     Route: 030
     Dates: start: 20010409
  3. RESTORIL [Concomitant]
  4. LUNESTA [Concomitant]
  5. VERAPAMIL EXTENDED-RELEASE [Concomitant]
  6. LORCET-HD [Concomitant]
     Indication: PAIN
     Dates: start: 20100830, end: 20101023
  7. LYRICA [Concomitant]
  8. PREMPRO [Concomitant]
  9. PROVIGIL [Concomitant]
  10. CYMBALTA [Concomitant]
     Indication: DEPRESSION
     Route: 048
     Dates: start: 20100825
  11. CYMBALTA [Concomitant]
     Indication: PAIN
     Route: 048
     Dates: start: 20100825
  12. FENTANYL-100 [Concomitant]
     Indication: PAIN
  13. FENTANYL-100 [Concomitant]
     Route: 061
     Dates: start: 20100923
  14. BENICAR [Concomitant]
     Indication: HYPERTENSION
     Route: 048
     Dates: start: 20100826
  15. ENABLEX [Concomitant]
  16. CALCIUM [Concomitant]
  17. VITAMIN D [Concomitant]
  18. ALPRAZOLAM [Concomitant]
     Indication: ANXIETY
     Route: 048
     Dates: start: 20100831, end: 20101024
  19. BACLOFEN [Concomitant]
     Indication: MUSCLE SPASTICITY
     Route: 048
     Dates: start: 20101014, end: 20101020

REACTIONS (4)
  - GRAND MAL CONVULSION [None]
  - PNEUMONIA ASPIRATION [None]
  - PROGRESSIVE MULTIFOCAL LEUKOENCEPHALOPATHY [None]
  - URINARY TRACT INFECTION [None]
